FAERS Safety Report 5632012-4 (Version None)
Quarter: 2008Q1

REPORT INFORMATION
  Report Type: 
  Country: None (occurrence: None)
  Receive Date: 20080220
  Receipt Date: 20080206
  Transmission Date: 20080703
  Serious: Yes (Hospitalization)
  Sender: FDA-Public Use
  Company Number: JP-ASTRAZENECA-2008SE00863

PATIENT
  Age: 56 Year
  Sex: Male
  Weight: 66 kg

DRUGS (3)
  1. BLOPRESS [Suspect]
     Indication: HYPERTENSION
     Route: 048
     Dates: start: 20060930
  2. BLOPRESS [Suspect]
     Route: 048
  3. ANTITHROMBOTIC AGENTS [Concomitant]

REACTIONS (1)
  - ATRIAL FIBRILLATION [None]
